FAERS Safety Report 25015824 (Version 1)
Quarter: 2025Q1

REPORT INFORMATION
  Report Type: Spontaneous
  Country: US (occurrence: US)
  Receive Date: 20250227
  Receipt Date: 20250227
  Transmission Date: 20250409
  Serious: No
  Sender: AMGEN
  Company Number: US-AMGEN-USASP2025037344

PATIENT
  Age: 20 Year
  Sex: Female

DRUGS (6)
  1. OTEZLA [Suspect]
     Active Substance: APREMILAST
     Indication: Psoriasis
     Dosage: 30 MILLIGRAM, BID
     Route: 048
     Dates: start: 20240910
  2. CETIRIZINE [Concomitant]
     Active Substance: CETIRIZINE HYDROCHLORIDE
  3. DICLOFENAC [Concomitant]
     Active Substance: DICLOFENAC
  4. METHYLCOBALAMIN [Concomitant]
     Active Substance: METHYLCOBALAMIN
  5. SUMATRIPTAN [Concomitant]
     Active Substance: SUMATRIPTAN
  6. VITAMIN D [Concomitant]
     Active Substance: VITAMIN D NOS

REACTIONS (1)
  - Fatigue [Not Recovered/Not Resolved]
